FAERS Safety Report 20641727 (Version 1)
Quarter: 2022Q1

REPORT INFORMATION
  Report Type: Spontaneous
  Country: JP (occurrence: JP)
  Receive Date: 20220328
  Receipt Date: 20220328
  Transmission Date: 20220423
  Serious: Yes (Hospitalization)
  Sender: FDA-Public Use
  Company Number: JP-CELGENE-JPN-20220301925

PATIENT
  Sex: Male

DRUGS (1)
  1. REVLIMID [Suspect]
     Active Substance: LENALIDOMIDE
     Indication: Plasma cell myeloma
     Dosage: FREQUENCY TEXT: UNKNOWN?UNKNOWN
     Route: 048

REACTIONS (3)
  - Physical deconditioning [Recovered/Resolved]
  - Blood uric acid increased [Recovered/Resolved]
  - Hypertension [Recovered/Resolved]
